FAERS Safety Report 23505329 (Version 1)
Quarter: 2024Q1

REPORT INFORMATION
  Report Type: Spontaneous
  Country: US (occurrence: US)
  Receive Date: 20240209
  Receipt Date: 20240209
  Transmission Date: 20240410
  Serious: No
  Sender: FDA-Public Use
  Company Number: US-EYEPOINT PHARMACEUTICALS, INC.-US-EYP-23-00108

PATIENT
  Age: 74 Year
  Sex: Female

DRUGS (3)
  1. YUTIQ [Suspect]
     Active Substance: FLUOCINOLONE ACETONIDE
     Indication: Birdshot chorioretinopathy
     Dosage: IN THE VITREOUS OF THE RIGHT EYE/OD
     Route: 031
  2. OZURDEX [Concomitant]
     Active Substance: DEXAMETHASONE
     Indication: Noninfective chorioretinitis
     Dosage: UNK UNK
     Route: 031
     Dates: start: 20230317
  3. OZURDEX [Concomitant]
     Active Substance: DEXAMETHASONE
     Dosage: OCCASIONALLY
     Route: 031

REACTIONS (4)
  - Drug delivery system issue [Recovered/Resolved]
  - Product dose omission issue [Unknown]
  - Off label use [Unknown]
  - No adverse event [Unknown]

NARRATIVE: CASE EVENT DATE: 20230317
